FAERS Safety Report 6121218-6 (Version None)
Quarter: 2009Q1

REPORT INFORMATION
  Report Type: 
  Country: None (occurrence: None)
  Receive Date: 20090313
  Receipt Date: 20090304
  Transmission Date: 20090719
  Serious: Yes (Hospitalization)
  Sender: FDA-Public Use
  Company Number: 2009AL001332

PATIENT
  Age: 37 Year
  Sex: Female

DRUGS (10)
  1. DICLOFENAC SODIUM [Suspect]
     Indication: BACK PAIN
     Dosage: 500 MG; BID;
     Dates: start: 20080901
  2. DEPAKOTE [Concomitant]
  3. ADCAL [Concomitant]
  4. ACETAMINOPHEN W/ CODEINE [Concomitant]
  5. EPILIM [Concomitant]
  6. OMEPRAZOLE [Concomitant]
  7. PREDNISOLONE [Concomitant]
  8. TEMOCAPRIL HYDROCHLORIDE [Concomitant]
  9. TRAMADOL HCL [Concomitant]
  10. ACETIBRIN [Concomitant]

REACTIONS (5)
  - ABDOMINAL DISTENSION [None]
  - DIARRHOEA [None]
  - MANIA [None]
  - MUSCLE SPASMS [None]
  - RECTAL HAEMORRHAGE [None]
